FAERS Safety Report 8435012-4 (Version None)
Quarter: 2012Q2

REPORT INFORMATION
  Report Type: 
  Country: None (occurrence: None)
  Receive Date: 20120614
  Receipt Date: 20120609
  Transmission Date: 20120825
  Serious: No
  Sender: FDA-Public Use
  Company Number: US-PFIZER INC-2012138854

PATIENT
  Sex: Male

DRUGS (1)
  1. VIAGRA [Suspect]
     Dosage: 150 MG (3 TABLETS OF 50MG), 1X/DAY
     Route: 048

REACTIONS (2)
  - FEELING ABNORMAL [None]
  - INCORRECT DOSE ADMINISTERED [None]
